FAERS Safety Report 6826894-8 (Version None)
Quarter: 2010Q3

REPORT INFORMATION
  Report Type: 
  Country: None (occurrence: None)
  Receive Date: 20100709
  Receipt Date: 20100701
  Transmission Date: 20110219
  Serious: Yes (Death)
  Sender: FDA-Public Use
  Company Number: LB-ROCHE-712743

PATIENT
  Age: 55 Year
  Sex: Female

DRUGS (2)
  1. PEGASYS [Suspect]
     Route: 058
  2. RIBAVIRIN [Suspect]
     Dosage: DOSE, FORM,FREQUENCY NOT REPORTED.
     Route: 048

REACTIONS (1)
  - ADENOCARCINOMA [None]
